FAERS Safety Report 9149444 (Version 1)
Quarter: 2013Q1

REPORT INFORMATION
  Report Type: Spontaneous
  Country: US (occurrence: None)
  Receive Date: 20130301
  Receipt Date: 20130301
  Transmission Date: 20140127
  Serious: Yes (Other)
  Sender: FDA-Public Use
  Company Number: None

PATIENT
  Sex: Male
  Weight: 74.84 kg

DRUGS (1)
  1. ACTHAR [Suspect]
     Indication: NEPHROTIC SYNDROME
     Dosage: 1 ML  2 INJECTIONS WEEK1 SQ
     Route: 058
     Dates: start: 20120904, end: 20130301

REACTIONS (11)
  - Injection site discolouration [None]
  - Sleep disorder [None]
  - Injection site reaction [None]
  - Blood pressure fluctuation [None]
  - Pulse abnormal [None]
  - Capillary fragility [None]
  - Tremor [None]
  - Mood swings [None]
  - Asthenia [None]
  - Weight decreased [None]
  - Blood creatinine increased [None]
